FAERS Safety Report 22912068 (Version 3)
Quarter: 2024Q1

REPORT INFORMATION
  Report Type: Spontaneous
  Country: US (occurrence: US)
  Receive Date: 20230906
  Receipt Date: 20240212
  Transmission Date: 20240409
  Serious: No
  Sender: FDA-Public Use
  Company Number: US-PFIZER INC-PV202300150400

PATIENT
  Age: 85 Year
  Sex: Male
  Weight: 73.469 kg

DRUGS (5)
  1. VYNDAMAX [Suspect]
     Active Substance: TAFAMIDIS
     Indication: Cardiac amyloidosis
     Dosage: 61 MG, 1X/DAY
     Dates: start: 202305
  2. DICYCLOMINE [Concomitant]
     Active Substance: DICYCLOMINE HYDROCHLORIDE
     Dosage: 10 MG
     Dates: start: 201803
  3. MEMANTINE [Concomitant]
     Active Substance: MEMANTINE
     Dosage: 5 MG
     Dates: start: 202003
  4. GABAPENTIN [Concomitant]
     Active Substance: GABAPENTIN
     Dosage: 600 MG
     Dates: start: 202208
  5. METOPROLOL TARTRATE [Concomitant]
     Active Substance: METOPROLOL TARTRATE
     Dosage: 25 MG
     Dates: start: 202210

REACTIONS (2)
  - Anxiety [Unknown]
  - Memory impairment [Unknown]
